FAERS Safety Report 7924711-6 (Version None)
Quarter: 2011Q4

REPORT INFORMATION
  Report Type: 
  Country: None (occurrence: None)
  Receive Date: 20111118
  Receipt Date: 20110325
  Transmission Date: 20120403
  Serious: No
  Sender: FDA-Public Use
  Company Number: US-AMGEN-USASP2011016112

PATIENT
  Age: 39 Year
  Sex: Male

DRUGS (2)
  1. ENBREL [Suspect]
     Indication: RHEUMATOID ARTHRITIS
     Dosage: 50 MG, QWK
     Dates: start: 20100901, end: 20110314
  2. ARAVA [Concomitant]
     Dosage: 1 MG, QD
     Dates: start: 20110201

REACTIONS (5)
  - SKIN LESION [None]
  - FUNGAL INFECTION [None]
  - NASOPHARYNGITIS [None]
  - LOWER RESPIRATORY TRACT INFECTION [None]
  - CHEST PAIN [None]
